FAERS Safety Report 9868101 (Version 1)
Quarter: 2014Q1

REPORT INFORMATION
  Report Type: Spontaneous
  Country: NL (occurrence: NL)
  Receive Date: 20140204
  Receipt Date: 20140204
  Transmission Date: 20141002
  Serious: Yes (Other)
  Sender: FDA-Public Use
  Company Number: NL-GLAXOSMITHKLINE-B0947405A

PATIENT
  Sex: Female

DRUGS (5)
  1. REQUIP [Suspect]
     Indication: PARKINSON^S DISEASE
     Dates: start: 19990224, end: 20020726
  2. SIFROL [Suspect]
     Indication: PARKINSON^S DISEASE
     Route: 065
     Dates: start: 20020626, end: 201207
  3. PERMAX [Suspect]
     Indication: PARKINSON^S DISEASE
     Route: 048
     Dates: start: 19970206, end: 19990224
  4. SINEMET [Concomitant]
  5. ARTANE [Concomitant]

REACTIONS (2)
  - Pathological gambling [Recovered/Resolved]
  - Obsessive-compulsive disorder [Recovered/Resolved]
